FAERS Safety Report 12624145 (Version 1)
Quarter: 2016Q3

REPORT INFORMATION
  Report Type: Spontaneous
  Country: US (occurrence: US)
  Receive Date: 20160805
  Receipt Date: 20160805
  Transmission Date: 20161109
  Serious: No
  Sender: FDA-Public Use
  Company Number: US-TEVA-681706ACC

PATIENT
  Sex: Female
  Weight: 69.46 kg

DRUGS (1)
  1. PARAGARD T 380A [Suspect]
     Active Substance: COPPER
     Indication: CONTRACEPTION
     Dates: start: 20160624, end: 20160629

REACTIONS (3)
  - Device expulsion [Recovered/Resolved]
  - Discomfort [Recovered/Resolved]
  - Exposure during breast feeding [Unknown]
